FAERS Safety Report 16514542 (Version 2)
Quarter: 2019Q3

REPORT INFORMATION
  Report Type: Spontaneous
  Country: US (occurrence: US)
  Receive Date: 20190702
  Receipt Date: 20190718
  Transmission Date: 20191004
  Serious: Yes (Other)
  Sender: FDA-Public Use
  Company Number: US-AKORN PHARMACEUTICALS-2019AKN01293

PATIENT
  Age: 18 Year
  Sex: Male
  Weight: 69.84 kg

DRUGS (3)
  1. MYORISAN [Suspect]
     Active Substance: ISOTRETINOIN
     Dosage: UNK
     Dates: start: 2019, end: 20190615
  2. MYORISAN [Suspect]
     Active Substance: ISOTRETINOIN
     Indication: ACNE CYSTIC
     Dosage: UNK
     Dates: start: 20190228, end: 20190524
  3. MYORISAN [Suspect]
     Active Substance: ISOTRETINOIN
     Indication: ACNE CYSTIC
     Dosage: UNK
     Dates: start: 20190130, end: 2019

REACTIONS (2)
  - Myalgia [Unknown]
  - Muscle enzyme increased [Recovered/Resolved]

NARRATIVE: CASE EVENT DATE: 2019
